FAERS Safety Report 23546061 (Version 1)
Quarter: 2024Q1

REPORT INFORMATION
  Report Type: Spontaneous
  Country: US (occurrence: US)
  Receive Date: 20240220
  Receipt Date: 20240220
  Transmission Date: 20240410
  Serious: No
  Sender: FDA-Public Use
  Company Number: US-BAYER-2024A024298

PATIENT
  Age: 74 Year
  Sex: Female

DRUGS (16)
  1. BETASERON [Suspect]
     Active Substance: INTERFERON BETA-1B
     Indication: Product used for unknown indication
  2. GABAPENTIN [Concomitant]
     Active Substance: GABAPENTIN
  3. ACYCLOVIR [Concomitant]
     Active Substance: ACYCLOVIR
  4. BUPROPION HYDROCHLORIDE [Concomitant]
     Active Substance: BUPROPION HYDROCHLORIDE
  5. SERTRALINE [Concomitant]
     Active Substance: SERTRALINE HYDROCHLORIDE
  6. SYNTHROID [Concomitant]
     Active Substance: LEVOTHYROXINE SODIUM
  7. BACLOFEN [Concomitant]
     Active Substance: BACLOFEN
  8. LOVAZA [Concomitant]
     Active Substance: OMEGA-3-ACID ETHYL ESTERS
  9. MINOXIDIL [Concomitant]
     Active Substance: MINOXIDIL
  10. CALCIUM [Concomitant]
     Active Substance: CALCIUM
  11. LYSINE [Concomitant]
     Active Substance: LYSINE
  12. INOSITOL NIACINATE [Concomitant]
     Active Substance: INOSITOL NIACINATE
  13. MULTIVITAMIN GUMMY BEARS [Concomitant]
  14. VITAMIN D3 [Concomitant]
     Active Substance: CHOLECALCIFEROL
  15. BUDESONIDE [Concomitant]
     Active Substance: BUDESONIDE
  16. ATROPINE\DIPHENOXYLATE [Concomitant]
     Active Substance: ATROPINE\DIPHENOXYLATE

REACTIONS (1)
  - Urinary tract infection [Unknown]
